FAERS Safety Report 5288264-6 (Version None)
Quarter: 2007Q2

REPORT INFORMATION
  Report Type: 
  Country: None (occurrence: None)
  Receive Date: 20070405
  Receipt Date: 20070326
  Transmission Date: 20071010
  Serious: Yes (Other)
  Sender: FDA-Public Use
  Company Number: US-ROCHE-470399

PATIENT
  Age: 47 Year
  Sex: Female

DRUGS (3)
  1. PEGASYS [Suspect]
     Indication: HEPATITIS C
     Dosage: STRENGTH AND FORMULATION REPORTED AS 180 MCG/0.5CC. ON AN UNSPECIFIED DATE, THERAPY WAS SUSPENDED F+
     Route: 058
     Dates: start: 20060912
  2. COPEGUS [Suspect]
     Indication: HEPATITIS C
     Route: 048
     Dates: start: 20060912
  3. COPEGUS [Suspect]
     Dosage: STOP DATE REPORTED AS 2006. ON AN UNSPECIFIED DATE, THERAPY WAS SUSPENDED FOR THREE WEEKS AND WAS R+
     Route: 048
     Dates: start: 20060912

REACTIONS (13)
  - ALANINE AMINOTRANSFERASE INCREASED [None]
  - ANOREXIA [None]
  - ASPARTATE AMINOTRANSFERASE INCREASED [None]
  - BLOOD COUNT [None]
  - BLOOD CREATININE INCREASED [None]
  - BLOOD GLUCOSE INCREASED [None]
  - BLOOD POTASSIUM DECREASED [None]
  - DYSPNOEA EXERTIONAL [None]
  - FALL [None]
  - HYPOTHYROIDISM [None]
  - PAIN IN EXTREMITY [None]
  - PHARYNGOLARYNGEAL PAIN [None]
  - SYNCOPE [None]
